FAERS Safety Report 5990137-8 (Version None)
Quarter: 2008Q4

REPORT INFORMATION
  Report Type: 
  Country: None (occurrence: None)
  Receive Date: 20081210
  Receipt Date: 20081201
  Transmission Date: 20090506
  Serious: Yes (Other)
  Sender: FDA-Public Use
  Company Number: AE-2008-014

PATIENT
  Age: 65 Year
  Sex: Female

DRUGS (14)
  1. HYDROXYCHLOROQUINE SULFATE [Suspect]
     Indication: RHEUMATOID ARTHRITIS
  2. SULFASALAZINE [Suspect]
     Indication: RHEUMATOID ARTHRITIS
  3. ADCAL-D3 [Concomitant]
  4. AMITRIPTYLINE HCL [Concomitant]
  5. CLOPIDOGREL [Concomitant]
  6. CODEINE SUL TAB [Concomitant]
  7. GABAPENTIN [Concomitant]
  8. GAVISCON (ALUMINIUM HYDROXIDE, CALCIUM CARBONATE, MAGNESIUM TRISILICAT [Concomitant]
  9. LANSOPRAZOLE [Concomitant]
  10. MOVICOL (POLYETHYLENE GLYCOL 3350, MACROGOL 3350) [Concomitant]
  11. ACETAMINOPHEN [Concomitant]
  12. PROCHLORPERAZINE MALEATE [Concomitant]
  13. SENNA [Concomitant]
  14. SIMVASTATIN [Concomitant]

REACTIONS (1)
  - THROMBOCYTOPENIA [None]
